FAERS Safety Report 6841861-6 (Version None)
Quarter: 2010Q3

REPORT INFORMATION
  Report Type: 
  Country: None (occurrence: None)
  Receive Date: 20100714
  Receipt Date: 20070714
  Transmission Date: 20110219
  Serious: No
  Sender: FDA-Public Use
  Company Number: US-PFIZER INC-2007059510

PATIENT
  Sex: Male
  Weight: 54.4 kg

DRUGS (6)
  1. CHANTIX [Suspect]
     Indication: SMOKING CESSATION THERAPY
     Dates: start: 20070703
  2. PREDNISOLONE [Concomitant]
  3. ALL OTHER THERAPEUTIC PRODUCTS [Concomitant]
  4. ADVAIR DISKUS 100/50 [Concomitant]
     Route: 055
  5. PAXIL [Concomitant]
  6. ACETYLSALICYLIC ACID [Concomitant]

REACTIONS (1)
  - VOMITING [None]
